FAERS Safety Report 15268871 (Version 3)
Quarter: 2018Q3

REPORT INFORMATION
  Report Type: Spontaneous
  Country: FR (occurrence: FR)
  Receive Date: 20180813
  Receipt Date: 20180917
  Transmission Date: 20181010
  Serious: Yes (Hospitalization, Other)
  Sender: FDA-Public Use
  Company Number: FR-AUROBINDO-AUR-APL-2018-041264

PATIENT
  Age: 64 Year
  Sex: Female
  Weight: 109.6 kg

DRUGS (14)
  1. IRBESARTAN. [Suspect]
     Active Substance: IRBESARTAN
     Indication: HYPERTENSION
     Dosage: 300 MILLIGRAM, ONCE A DAY
     Route: 048
  2. GABAPENTIN. [Suspect]
     Active Substance: GABAPENTIN
     Indication: NEURALGIA
     Dosage: 300 MILLIGRAM, ONCE A DAY (QD)
     Route: 048
     Dates: start: 201501
  3. ALLOPURINOL. [Suspect]
     Active Substance: ALLOPURINOL
     Indication: HYPERURICAEMIA
     Dosage: 100 MILLIGRAM, ONCE A DAY (QD)
     Route: 048
  4. TRAMADOL. [Suspect]
     Active Substance: TRAMADOL
     Indication: NEURALGIA
     Dosage: SI BESOIN
     Route: 048
  5. ZOPICLONE [Suspect]
     Active Substance: ZOPICLONE
     Indication: SLEEP DISORDER
     Dosage: 1 DOSAGE FORM, ONCE A DAY (QD)
     Route: 048
  6. LEVOTHYROX [Suspect]
     Active Substance: LEVOTHYROXINE
     Indication: HYPOTHYROIDISM
     Dosage: 1 DOSAGE FORM, ONCE A DAY (QD)
     Route: 048
     Dates: end: 20180625
  7. EUPRESSYL                          /00631801/ [Suspect]
     Active Substance: URAPIDIL
     Indication: HYPERTENSION
     Dosage: 1 DOSAGE FORM, ONCE A DAY
     Route: 048
  8. KARDEGIC [Suspect]
     Active Substance: ASPIRIN DL-LYSINE
     Indication: PRODUCT USED FOR UNKNOWN INDICATION
     Dosage: 1 DOSAGE FORM, ONCE A DAY
     Route: 048
  9. AMLODIPINE [Suspect]
     Active Substance: AMLODIPINE BESYLATE
     Indication: HYPERTENSION
     Dosage: 10 MILLIGRAM, ONCE A DAY
     Route: 048
  10. JANUMET [Suspect]
     Active Substance: METFORMIN HYDROCHLORIDE\SITAGLIPTIN PHOSPHATE
     Indication: TYPE 2 DIABETES MELLITUS
     Dosage: 2 DOSAGE FORM, ONCE A DAY (QD)
     Route: 048
     Dates: end: 20180619
  11. PARACETAMOL [Suspect]
     Active Substance: ACETAMINOPHEN
     Indication: NEURALGIA
     Dosage: SI BESOIN
     Route: 048
  12. HYDROCHLOROTHIAZIDE. [Suspect]
     Active Substance: HYDROCHLOROTHIAZIDE
     Indication: HYPERTENSION
     Dosage: 12.5 MILLIGRAM, ONCE A DAY
     Route: 048
  13. ATORVASTATIN [Suspect]
     Active Substance: ATORVASTATIN
     Indication: DYSLIPIDAEMIA
     Dosage: 10 MILLIGRAM, ONCE A DAY
     Route: 048
  14. TOVIAZ [Suspect]
     Active Substance: FESOTERODINE FUMARATE
     Indication: PRODUCT USED FOR UNKNOWN INDICATION
     Dosage: 1 DOSAGE FORM, ONCE A DAY (QD)
     Route: 048
     Dates: start: 2017

REACTIONS (1)
  - Pemphigoid [Recovering/Resolving]

NARRATIVE: CASE EVENT DATE: 201803
